FAERS Safety Report 4264661-2 (Version None)
Quarter: 2004Q1

REPORT INFORMATION
  Report Type: 
  Country: None (occurrence: None)
  Receive Date: 20040102
  Receipt Date: 20031224
  Transmission Date: 20041129
  Serious: Yes (Death)
  Sender: FDA-Public Use
  Company Number: USA-2003-0010290

PATIENT
  Age: 47 Year
  Sex: Female
  Weight: 94.3 kg

DRUGS (7)
  1. OXYCONTIN [Suspect]
     Indication: PAIN
     Dosage: 40 MG, TID, ORAL
     Route: 048
  2. SOMA [Suspect]
     Indication: BACK PAIN
     Dosage: ORAL
     Route: 048
  3. MEPROBAMATE [Concomitant]
  4. FLUOXETINE [Suspect]
  5. AMITRIPTYLINE HCL [Concomitant]
  6. PROMETHAZINE [Suspect]
  7. STADOL [Concomitant]

REACTIONS (6)
  - ACCIDENTAL OVERDOSE [None]
  - CARDIOMEGALY [None]
  - COMA [None]
  - DRUG SCREEN POSITIVE [None]
  - MULTIPLE DRUG OVERDOSE [None]
  - VENTRICULAR HYPERTROPHY [None]
